FAERS Safety Report 6218832-6 (Version None)
Quarter: 2009Q2

REPORT INFORMATION
  Report Type: 
  Country: None (occurrence: None)
  Receive Date: 20090605
  Receipt Date: 20090520
  Transmission Date: 20091009
  Serious: Yes (Other)
  Sender: FDA-Public Use
  Company Number: CA-GENENTECH-283956

PATIENT
  Sex: Female

DRUGS (7)
  1. OMALIZUMAB [Suspect]
     Indication: DRUG USE FOR UNKNOWN INDICATION
     Dosage: UNK
     Route: 058
  2. VENTOLIN [Concomitant]
     Indication: DRUG USE FOR UNKNOWN INDICATION
  3. BENADRYL [Concomitant]
     Indication: DRUG USE FOR UNKNOWN INDICATION
  4. SYMBICORT [Concomitant]
     Indication: DRUG USE FOR UNKNOWN INDICATION
  5. REACTINE [Concomitant]
     Indication: DRUG USE FOR UNKNOWN INDICATION
  6. FLONASE [Concomitant]
     Indication: DRUG USE FOR UNKNOWN INDICATION
  7. TYLENOL (CAPLET) [Concomitant]
     Indication: DRUG USE FOR UNKNOWN INDICATION

REACTIONS (1)
  - GLOMERULAR FILTRATION RATE DECREASED [None]
